FAERS Safety Report 7090151-8 (Version None)
Quarter: 2010Q4

REPORT INFORMATION
  Report Type: 
  Country: None (occurrence: None)
  Receive Date: 20101105
  Receipt Date: 20101105
  Transmission Date: 20110411
  Serious: No
  Sender: FDA-Public Use
  Company Number: None

PATIENT
  Sex: Female
  Weight: 67.1324 kg

DRUGS (3)
  1. WELLBUTRIN SR [Suspect]
     Indication: ANXIETY
     Dosage: 150 MG DAILY PO
     Route: 048
     Dates: start: 20101016, end: 20101017
  2. WELLBUTRIN SR [Suspect]
     Indication: DEPRESSION
     Dosage: 150 MG DAILY PO
     Route: 048
     Dates: start: 20101016, end: 20101017
  3. WELLBUTRIN SR [Suspect]
     Indication: POST-TRAUMATIC STRESS DISORDER
     Dosage: 150 MG DAILY PO
     Route: 048
     Dates: start: 20101016, end: 20101017

REACTIONS (3)
  - ANXIETY [None]
  - IRRITABILITY [None]
  - THINKING ABNORMAL [None]
